FAERS Safety Report 18836832 (Version 1)
Quarter: 2021Q1

REPORT INFORMATION
  Report Type: Spontaneous
  Country: US (occurrence: US)
  Receive Date: 20210203
  Receipt Date: 20210203
  Transmission Date: 20210419
  Serious: Yes (Other)
  Sender: FDA-Public Use
  Company Number: US-ALLERGAN-2014216US

PATIENT
  Age: 67 Year
  Sex: Male

DRUGS (13)
  1. BOTOX [Suspect]
     Active Substance: ONABOTULINUMTOXINA
     Indication: MUSCLE SPASTICITY
     Dosage: 50 UNITS, SINGLE
     Route: 065
     Dates: start: 20200110, end: 20200110
  2. BOTOX [Suspect]
     Active Substance: ONABOTULINUMTOXINA
     Dosage: 50 UNITS, SINGLE
     Route: 065
     Dates: start: 20200110, end: 20200110
  3. BOTOX [Suspect]
     Active Substance: ONABOTULINUMTOXINA
     Dosage: 50 UNITS, SINGLE
     Route: 065
     Dates: start: 20200110, end: 20200110
  4. BOTOX [Suspect]
     Active Substance: ONABOTULINUMTOXINA
     Dosage: 22 UNITS, SINGLE
     Route: 065
     Dates: start: 20200110, end: 20200110
  5. BOTOX [Suspect]
     Active Substance: ONABOTULINUMTOXINA
     Indication: CENTRAL CORD SYNDROME
     Dosage: 50 UNITS, SINGLE
     Route: 065
     Dates: start: 20200110, end: 20200110
  6. BACLOFEN. [Concomitant]
     Active Substance: BACLOFEN
  7. PANTOPRAZOLE [Concomitant]
     Active Substance: PANTOPRAZOLE
  8. TRAMADOL. [Concomitant]
     Active Substance: TRAMADOL
  9. LYRICA [Concomitant]
     Active Substance: PREGABALIN
  10. LORAZEPAM. [Concomitant]
     Active Substance: LORAZEPAM
  11. SPIRONOLACTONE. [Concomitant]
     Active Substance: SPIRONOLACTONE
  12. FUROSEMIDE. [Concomitant]
     Active Substance: FUROSEMIDE
  13. BOTOX [Suspect]
     Active Substance: ONABOTULINUMTOXINA
     Dosage: 50 UNITS, SINGLE
     Route: 065
     Dates: start: 20200110, end: 20200110

REACTIONS (3)
  - Diplopia [Unknown]
  - Myasthenia gravis [Not Recovered/Not Resolved]
  - Off label use [Unknown]

NARRATIVE: CASE EVENT DATE: 202001
